FAERS Safety Report 7751814-1 (Version None)
Quarter: 2011Q3

REPORT INFORMATION
  Report Type: 
  Country: None (occurrence: None)
  Receive Date: 20110914
  Receipt Date: 20110914
  Transmission Date: 20111222
  Serious: Yes (Hospitalization)
  Sender: FDA-Public Use
  Company Number: None

PATIENT
  Age: 45 Year
  Sex: Male
  Weight: 101.6057 kg

DRUGS (1)
  1. CLOZAPINE [Suspect]
     Dosage: 200 MG PO BID
     Route: 048

REACTIONS (3)
  - PERICARDIAL EFFUSION [None]
  - LIVER FUNCTION TEST ABNORMAL [None]
  - PROTHROMBIN TIME PROLONGED [None]
